FAERS Safety Report 5835865-X (Version None)
Quarter: 2008Q3

REPORT INFORMATION
  Report Type: 
  Country: None (occurrence: None)
  Receive Date: 20080730
  Receipt Date: 20070809
  Transmission Date: 20090109
  Serious: Yes (Other)
  Sender: FDA-Public Use
  Company Number: 39793

PATIENT
  Age: 59 Year
  Sex: Female

DRUGS (3)
  1. PACLITAXEL [Suspect]
     Indication: BREAST CANCER METASTATIC
     Dosage: 126MG/3 OF 4 WKS
     Route: 042
     Dates: start: 20070405, end: 20070412
  2. PACLITAXEL [Suspect]
     Indication: BREAST CANCER METASTATIC
     Dosage: 126MG/3 OF 4 WKS
     Route: 042
     Dates: start: 20070419, end: 20070503
  3. AVASTIN [Concomitant]

REACTIONS (3)
  - FLUSHING [None]
  - HYPERSENSITIVITY [None]
  - HYPERTENSION [None]
